FAERS Safety Report 5361479-4 (Version None)
Quarter: 2007Q2

REPORT INFORMATION
  Report Type: 
  Country: None (occurrence: None)
  Receive Date: 20070619
  Receipt Date: 20070612
  Transmission Date: 20071010
  Serious: Yes (Other)
  Sender: FDA-Public Use
  Company Number: DEWYE833212JUN07

PATIENT
  Sex: Female

DRUGS (2)
  1. VENLAFAXINE HCL [Suspect]
     Indication: DEPRESSION
     Dosage: 150 MG DAILY
     Route: 048
  2. VENLAFAXINE HCL [Suspect]
     Dosage: 75 MG DAILY
     Route: 048

REACTIONS (1)
  - RECTAL CANCER METASTATIC [None]
